FAERS Safety Report 4273129-9 (Version None)
Quarter: 2004Q1

REPORT INFORMATION
  Report Type: 
  Country: None (occurrence: None)
  Receive Date: 20040116
  Receipt Date: 20030314
  Transmission Date: 20041129
  Serious: Yes (Hospitalization, Other)
  Sender: FDA-Public Use
  Company Number: JP-GLAXOSMITHKLINE-B0295283A

PATIENT
  Age: 73 Year
  Sex: Male
  Weight: 50 kg

DRUGS (3)
  1. ZOVIRAX [Suspect]
     Dosage: 250MG PER DAY
     Route: 042
     Dates: start: 20030311, end: 20030311
  2. VALTREX [Suspect]
     Indication: HERPES ZOSTER
     Dosage: 2G PER DAY
     Route: 048
     Dates: start: 20030310, end: 20030310
  3. CONTINUOUS AMBULATORY PERITONEAL DIALYSIS [Concomitant]
     Dates: start: 19990801

REACTIONS (8)
  - ASTHENIA [None]
  - DEPRESSED LEVEL OF CONSCIOUSNESS [None]
  - DYSLALIA [None]
  - HAEMODIALYSIS [None]
  - NAUSEA [None]
  - PERITONEAL DIALYSIS [None]
  - TOXIC INDUCED ENCEPHALOPATHY [None]
  - VOMITING [None]
